FAERS Safety Report 9322524 (Version 1)
Quarter: 2013Q2

REPORT INFORMATION
  Report Type: Spontaneous
  Country: DE (occurrence: DE)
  Receive Date: 20130531
  Receipt Date: 20130531
  Transmission Date: 20140414
  Serious: Yes (Other)
  Sender: FDA-Public Use
  Company Number: DE-B.I. PHARMACEUTICALS,INC./RIDGEFIELD-2013-DE-01296DE

PATIENT
  Age: 72 Year
  Sex: Male

DRUGS (1)
  1. SIFROL [Suspect]
     Indication: PARKINSONISM
     Dates: start: 20130410, end: 20130502

REACTIONS (2)
  - Glomerular filtration rate decreased [Unknown]
  - Renal failure [Unknown]
